FAERS Safety Report 15969456 (Version 9)
Quarter: 2020Q3

REPORT INFORMATION
  Report Type: Report from Study
  Country: US (occurrence: US)
  Receive Date: 20190215
  Receipt Date: 20200814
  Transmission Date: 20201102
  Serious: Yes (Hospitalization, Other)
  Sender: FDA-Public Use
  Company Number: US-ACTELION-A-NJ2019-186342

PATIENT
  Age: 73 Year
  Sex: Female
  Weight: 44.44 kg

DRUGS (3)
  1. BENADRYL [Concomitant]
     Active Substance: DIPHENHYDRAMINE HYDROCHLORIDE
  2. OPSUMIT [Suspect]
     Active Substance: MACITENTAN
     Indication: PULMONARY HYPERTENSION
     Dosage: 10 MG, QD
     Route: 048
  3. ADCIRCA [Concomitant]
     Active Substance: TADALAFIL

REACTIONS (42)
  - Head injury [Unknown]
  - Nasal congestion [Unknown]
  - Condition aggravated [Unknown]
  - Visual impairment [Unknown]
  - Rhinorrhoea [Unknown]
  - Chest pain [Unknown]
  - Exercise tolerance decreased [Unknown]
  - Bladder disorder [Unknown]
  - Oropharyngeal discomfort [Not Recovered/Not Resolved]
  - Fatigue [Unknown]
  - Lung disorder [Unknown]
  - Anaemia [Unknown]
  - Palpitations [Unknown]
  - Corneal abrasion [Unknown]
  - Dizziness [Unknown]
  - Dyspnoea exertional [Unknown]
  - Hot flush [Unknown]
  - Bone contusion [Unknown]
  - Pneumonia aspiration [Unknown]
  - Pulmonary mass [Unknown]
  - Dry eye [Unknown]
  - Hypoaesthesia [Not Recovered/Not Resolved]
  - Swelling face [Unknown]
  - Dyspnoea [Unknown]
  - Cough [Unknown]
  - Pulmonary function test decreased [Unknown]
  - Ageusia [Recovered/Resolved]
  - Hypoglycaemia [Unknown]
  - Fall [Unknown]
  - Urinary tract infection [Unknown]
  - Blood glucose decreased [Not Recovered/Not Resolved]
  - Asthenia [Unknown]
  - Vision blurred [Unknown]
  - Dyspnoea at rest [Unknown]
  - Feeling abnormal [Unknown]
  - Syncope [Unknown]
  - Decreased appetite [Unknown]
  - Weight decreased [Unknown]
  - Oedema [Unknown]
  - Sinus disorder [Unknown]
  - Throat tightness [Unknown]
  - Drug hypersensitivity [Unknown]

NARRATIVE: CASE EVENT DATE: 202006
